FAERS Safety Report 10275843 (Version 3)
Quarter: 2015Q3

REPORT INFORMATION
  Report Type: Spontaneous
  Country: US (occurrence: US)
  Receive Date: 20140703
  Receipt Date: 20150812
  Transmission Date: 20151125
  Serious: Yes (Other)
  Sender: FDA-Public Use
  Company Number: US-AMGEN-USASP2014016122

PATIENT
  Age: 56 Year
  Sex: Female

DRUGS (1)
  1. ENBREL [Suspect]
     Active Substance: ETANERCEPT
     Indication: RHEUMATOID ARTHRITIS
     Dosage: 50 MG, QWK
     Route: 058
     Dates: start: 2013, end: 201406

REACTIONS (15)
  - Neoplasm malignant [Unknown]
  - Lymphadenopathy [Unknown]
  - Shoulder arthroplasty [Unknown]
  - Surgery [Recovered/Resolved]
  - Injection site erythema [Not Recovered/Not Resolved]
  - Malaise [Unknown]
  - Intervertebral disc protrusion [Unknown]
  - Nerve compression [Unknown]
  - Oropharyngeal pain [Unknown]
  - Rheumatoid arthritis [Unknown]
  - Gait disturbance [Unknown]
  - Drug ineffective [Unknown]
  - Foot deformity [Unknown]
  - Chondrolysis [Unknown]
  - Staphylococcal infection [Unknown]

NARRATIVE: CASE EVENT DATE: 2014
